FAERS Safety Report 11311459 (Version 1)
Quarter: 2015Q3

REPORT INFORMATION
  Report Type: Spontaneous
  Country: US (occurrence: US)
  Receive Date: 20150727
  Receipt Date: 20150727
  Transmission Date: 20151125
  Serious: No
  Sender: FDA-Public Use
  Company Number: US-TARO-2015TAR00492

PATIENT
  Age: 91 Year
  Sex: Male
  Weight: 68.93 kg

DRUGS (3)
  1. TOPICORT [Suspect]
     Active Substance: DESOXIMETASONE
     Indication: SOLAR LENTIGO
  2. UNSPECIFIED CONCOMITANT MEDICATION(S) [Concomitant]
  3. TOPICORT [Suspect]
     Active Substance: DESOXIMETASONE
     Indication: ERYTHEMA
     Dosage: 1 DOSAGE UNITS, ONCE
     Dates: start: 20150522

REACTIONS (2)
  - Application site pain [Recovered/Resolved]
  - Off label use [Recovered/Resolved]

NARRATIVE: CASE EVENT DATE: 20150522
